FAERS Safety Report 8789669 (Version 2)
Quarter: 2012Q4

REPORT INFORMATION
  Report Type: Spontaneous
  Country: US (occurrence: None)
  Receive Date: 20120905
  Receipt Date: 20120907
  Transmission Date: 20130627
  Serious: Yes (Hospitalization, Other)
  Sender: FDA-Public Use
  Company Number: ADR-2012-01619

PATIENT
  Age: 22 Year
  Sex: Male

DRUGS (3)
  1. BACLOFEN [Suspect]
     Indication: SPASTICITY
  2. BACLOFEN [Suspect]
     Indication: SPINAL CORD INJURY
  3. BACLOFEN [Suspect]
     Indication: UNSPECIFIED DISEASE OF SPINAL CORD

REACTIONS (2)
  - Muscle spasticity [None]
  - Medical device complication [None]
